FAERS Safety Report 5131651-7 (Version None)
Quarter: 2006Q4

REPORT INFORMATION
  Report Type: 
  Country: None (occurrence: None)
  Receive Date: 20061020
  Receipt Date: 20061011
  Transmission Date: 20070319
  Serious: Yes (Hospitalization)
  Sender: FDA-Public Use
  Company Number: FR-ABBOTT-06P-056-0346763-00

PATIENT
  Age: 37 Year
  Sex: Male
  Weight: 50 kg

DRUGS (10)
  1. ZECLAR [Suspect]
     Indication: MYCOBACTERIAL INFECTION
     Route: 048
     Dates: start: 20060401
  2. ZECLAR [Suspect]
  3. CIPROFLOXACIN HCL [Suspect]
     Indication: CYSTITIS NONINFECTIVE
     Route: 048
     Dates: start: 20060228, end: 20060427
  4. AMIKACIN [Suspect]
     Indication: ANTIBIOTIC PROPHYLAXIS
     Route: 042
     Dates: start: 20060415, end: 20060515
  5. TACROLIMUS [Suspect]
     Indication: DRUG USE FOR UNKNOWN INDICATION
  6. VORICONAZOLE [Suspect]
     Indication: DRUG USE FOR UNKNOWN INDICATION
  7. ETHAMBUTOL HYDROCHLORIDE [Concomitant]
     Indication: ANTIBIOTIC PROPHYLAXIS
     Dates: start: 20060401
  8. RIFABUTIN [Concomitant]
     Indication: ANTIBIOTIC PROPHYLAXIS
     Dates: start: 20060401
  9. CEFOXITIN [Concomitant]
     Indication: ANTIBIOTIC PROPHYLAXIS
     Dates: start: 20060509
  10. TIGECYCLINE [Concomitant]
     Indication: ANTIBIOTIC PROPHYLAXIS
     Dates: start: 20060519

REACTIONS (9)
  - BLOOD CREATINE INCREASED [None]
  - DIARRHOEA [None]
  - LEUKOCYTURIA [None]
  - NAUSEA [None]
  - OVERDOSE [None]
  - PROTEINURIA [None]
  - RENAL FAILURE ACUTE [None]
  - RENAL IMPAIRMENT [None]
  - RENAL TUBULAR DISORDER [None]
